FAERS Safety Report 24012955 (Version 1)
Quarter: 2024Q2

REPORT INFORMATION
  Report Type: Spontaneous
  Country: US (occurrence: US)
  Receive Date: 20240626
  Receipt Date: 20240626
  Transmission Date: 20240716
  Serious: No
  Sender: FDA-Public Use
  Company Number: US-GLENMARK PHARMACEUTICALS-2024GMK088312

PATIENT

DRUGS (1)
  1. RILUZOLE [Suspect]
     Active Substance: RILUZOLE
     Indication: Amyotrophic lateral sclerosis
     Dosage: 2 DOSAGE FORM, QD (2 PILLS A DAY)
     Route: 048
     Dates: start: 20231214

REACTIONS (5)
  - Hypoaesthesia oral [Unknown]
  - Poor quality product administered [Unknown]
  - Product solubility abnormal [Unknown]
  - Product container seal issue [Unknown]
  - Product quality issue [Unknown]

NARRATIVE: CASE EVENT DATE: 20231214
